FAERS Safety Report 5974271-4 (Version None)
Quarter: 2008Q4

REPORT INFORMATION
  Report Type: 
  Country: None (occurrence: None)
  Receive Date: 20081128
  Receipt Date: 20081117
  Transmission Date: 20090506
  Serious: No
  Sender: FDA-Public Use
  Company Number: US025052

PATIENT
  Age: 34 Year
  Sex: Female

DRUGS (5)
  1. FENTORA [Suspect]
     Indication: SPINAL OSTEOARTHRITIS
     Dosage: 800 UG 800UG Q2HR AS NEEDED BUCCAL
     Route: 002
  2. FENTANYL-100 [Concomitant]
  3. ACTIQ [Concomitant]
  4. XANAX [Concomitant]
  5. YAZ [Concomitant]

REACTIONS (2)
  - DRUG PRESCRIBING ERROR [None]
  - MEDICATION ERROR [None]
